FAERS Safety Report 6525009-3 (Version None)
Quarter: 2010Q1

REPORT INFORMATION
  Report Type: 
  Country: None (occurrence: None)
  Receive Date: 20100104
  Receipt Date: 20091222
  Transmission Date: 20100710
  Serious: Yes (Hospitalization)
  Sender: FDA-Public Use
  Company Number: US-PFIZER INC-2009192830

PATIENT
  Sex: Male

DRUGS (13)
  1. SUNITINIB MALATE [Suspect]
     Indication: MENINGIOMA
     Dosage: 37.5 MG, 28 DAYS ON, 14 DAYS OFF
     Dates: start: 20081125, end: 20090402
  2. ACETAMINOPHEN [Concomitant]
     Dosage: UNK
     Dates: start: 20070914
  3. BACLOFEN [Concomitant]
     Dosage: UNK
     Dates: start: 20090209
  4. GABAPENTIN [Concomitant]
     Dosage: UNK
     Dates: start: 20080527
  5. HYDROCODONE [Concomitant]
     Dosage: UNK
     Dates: start: 20090209, end: 20090515
  6. LACTULOSE [Concomitant]
     Dosage: UNK
     Dates: start: 20080529, end: 20090413
  7. ONDANSETRON [Concomitant]
     Dosage: UNK
     Dates: start: 20090131, end: 20090401
  8. OXYCODONE [Concomitant]
     Dosage: UNK
     Dates: start: 20070914, end: 20090515
  9. AMITRIPTYLINE [Concomitant]
     Dosage: UNK
     Dates: start: 20070914, end: 20081222
  10. IBUPROFEN [Concomitant]
     Dosage: UNK
     Dates: start: 20080527, end: 20090209
  11. LORAZEPAM [Concomitant]
     Dosage: UNK
     Dates: start: 20090131, end: 20090203
  12. MORPHINE SULFATE [Concomitant]
     Dosage: UNK
     Dates: start: 20090131, end: 20090203
  13. TIZANIDINE HYDROCHLORIDE [Concomitant]
     Dosage: UNK
     Dates: start: 20070914, end: 20090130

REACTIONS (5)
  - ATAXIA [None]
  - CONDITION AGGRAVATED [None]
  - FATIGUE [None]
  - HEADACHE [None]
  - NECK PAIN [None]
